FAERS Safety Report 22333030 (Version 4)
Quarter: 2023Q4

REPORT INFORMATION
  Report Type: Spontaneous
  Country: US (occurrence: US)
  Receive Date: 20230517
  Receipt Date: 20231215
  Transmission Date: 20240110
  Serious: Yes (Other)
  Sender: FDA-Public Use
  Company Number: US-PFIZER INC-PV202300014885

PATIENT
  Age: 68 Year
  Sex: Female

DRUGS (1)
  1. IBRANCE [Suspect]
     Active Substance: PALBOCICLIB
     Indication: Breast cancer
     Dosage: 75 MG, CYCLIC (TAKE 1 TABLET DAILY FOR 21 DAYS, THEN OFF FOR 7 DAYS)
     Route: 048
     Dates: start: 2021

REACTIONS (6)
  - Hallucination [Unknown]
  - Neoplasm progression [Unknown]
  - Cholesterosis [Recovered/Resolved]
  - Confusional state [Unknown]
  - Tremor [Unknown]
  - Gait inability [Unknown]

NARRATIVE: CASE EVENT DATE: 20210517
